FAERS Safety Report 8862449 (Version 1)
Quarter: 2012Q4

REPORT INFORMATION
  Report Type: 
  Country: GB (occurrence: GB)
  Receive Date: 20121026
  Receipt Date: 20121026
  Transmission Date: 20130627
  Serious: Yes (Hospitalization, Other)
  Sender: FDA-Public Use
  Company Number: GB-SANOFI-AVENTIS-2012SA075807

PATIENT
  Age: 66 Year
  Sex: Female
  Weight: 66 kg

DRUGS (9)
  1. MULTAQ [Suspect]
     Indication: ATRIAL FIBRILLATION
     Dosage: 400 nos twice daily.
     Dates: start: 20120601, end: 20120923
  2. LANSOPRAZOLE [Concomitant]
     Dosage: Ongoing
30 nos daily
     Dates: start: 20101017
  3. ASPIRIN [Concomitant]
     Indication: ISCHEMIC HEART DISEASE
     Dosage: Ongoing
75 nos
     Dates: start: 20000523
  4. CO-CODAMOL [Concomitant]
     Indication: PAIN
     Dosage: 30/500. One to two, four times a day, as needed. Ongoing
     Dates: start: 20051107
  5. ISOTARD XL [Concomitant]
     Indication: ISCHEMIC HEART DISEASE
     Dosage: Ongoing
1 nos daily
     Dates: start: 20101112
  6. RAMIPRIL [Concomitant]
     Dosage: Ongoing
1.25 nos
     Dates: start: 20110726
  7. SIMVASTATIN [Concomitant]
     Indication: ISCHEMIC HEART DISEASE
     Dosage: 20 nos At night. Ongoing
     Dates: start: 20120601
  8. WARFARIN [Concomitant]
     Indication: ATRIAL FIBRILLATION
     Dosage: Ongoing. As per yellow book
     Dates: start: 20120601
  9. QUESTRAN [Concomitant]
     Indication: BOWEL DYSFUNCTION
     Dosage: Sachets, as directed. Ongoing
     Dates: start: 20031014

REACTIONS (5)
  - Pancreatitis [Not Recovered/Not Resolved]
  - Hypokalaemia [Not Recovered/Not Resolved]
  - Anaemia [Not Recovered/Not Resolved]
  - Alanine aminotransferase increased [Not Recovered/Not Resolved]
  - Blood alkaline phosphatase increased [Not Recovered/Not Resolved]
